FAERS Safety Report 9361987 (Version 1)
Quarter: 2013Q2

REPORT INFORMATION
  Report Type: Spontaneous
  Country: BR (occurrence: BR)
  Receive Date: 20130621
  Receipt Date: 20130621
  Transmission Date: 20140414
  Serious: Yes (Other)
  Sender: FDA-Public Use
  Company Number: BR-PFIZER INC-2013184918

PATIENT
  Age: 60 Year
  Sex: Female
  Weight: 79 kg

DRUGS (2)
  1. EFEXOR XR [Suspect]
     Indication: DEPRESSION
     Dosage: 75 MG (ONE CAPSULE), 1X/DAY
     Route: 048
     Dates: start: 20130612
  2. LYRICA [Concomitant]
     Indication: FIBROMYALGIA
     Dosage: TWO CAPSULES (75MG EACH) DAILY
     Dates: start: 20130505

REACTIONS (1)
  - Diplegia [Unknown]
